FAERS Safety Report 20024738 (Version 1)
Quarter: 2021Q4

REPORT INFORMATION
  Report Type: Report from Study
  Country: CA (occurrence: CA)
  Receive Date: 20211102
  Receipt Date: 20211102
  Transmission Date: 20220303
  Serious: Yes (Hospitalization)
  Sender: FDA-Public Use
  Company Number: CA-GLAXOSMITHKLINE-CA2021225331

PATIENT
  Age: 78 Year
  Sex: Female

DRUGS (1)
  1. MEPOLIZUMAB [Suspect]
     Active Substance: MEPOLIZUMAB
     Indication: Asthma
     Dosage: 100 MG, EVERY 4 WEEKS
     Route: 058
     Dates: start: 20200828

REACTIONS (1)
  - Colostomy [Recovered/Resolved]

NARRATIVE: CASE EVENT DATE: 20211010
